FAERS Safety Report 9558815 (Version 1)
Quarter: 2013Q3

REPORT INFORMATION
  Report Type: Spontaneous
  Country: US (occurrence: US)
  Receive Date: 20130926
  Receipt Date: 20130926
  Transmission Date: 20140515
  Serious: Yes (Hospitalization, Other)
  Sender: FDA-Public Use
  Company Number: US-ELI_LILLY_AND_COMPANY-US201309008700

PATIENT
  Age: 84 Year
  Sex: Female
  Weight: 60 kg

DRUGS (9)
  1. EVISTA [Suspect]
     Indication: PRODUCT USED FOR UNKNOWN INDICATION
     Dosage: 60 MG, UNKNOWN
     Route: 048
     Dates: start: 20060419, end: 20100708
  2. FOSAMAX [Suspect]
     Dosage: 70 MG, UNKNOWN
     Route: 048
     Dates: start: 20060828, end: 20061213
  3. BONIVA [Suspect]
     Dosage: 150 MG, MONTHLY (1/M)
     Route: 048
     Dates: start: 20070413
  4. ACIPHEX [Concomitant]
  5. PEPCID                             /00706001/ [Concomitant]
  6. MIACALCIN [Concomitant]
  7. CALCIUM [Concomitant]
  8. VITAMIN D NOS [Concomitant]
  9. LOVENOX [Concomitant]

REACTIONS (9)
  - Fall [Recovered/Resolved]
  - Femur fracture [Recovering/Resolving]
  - Scapula fracture [Unknown]
  - Sepsis [Unknown]
  - Pneumonia [Unknown]
  - Thrombocytopenia [Unknown]
  - Foot fracture [Recovering/Resolving]
  - Rib fracture [Unknown]
  - Bone density decreased [Unknown]
